FAERS Safety Report 4578135-2 (Version None)
Quarter: 2005Q1

REPORT INFORMATION
  Report Type: 
  Country: None (occurrence: None)
  Receive Date: 20050209
  Receipt Date: 20050203
  Transmission Date: 20050727
  Serious: Yes (Hospitalization)
  Sender: FDA-Public Use
  Company Number: 200510255GDS

PATIENT
  Age: 84 Year
  Sex: Male

DRUGS (4)
  1. CARDIOASPIRIN (ACETYLSALICYLIC ACID) [Suspect]
     Indication: CARDIAC DISORDER
     Dosage: 100 MG, TOTAL DAILY, ORAL
     Route: 048
     Dates: start: 20010101, end: 20041220
  2. HIZAAR [Concomitant]
  3. LOPRESSOR [Concomitant]
  4. ENDOXAN [Concomitant]

REACTIONS (4)
  - ANAEMIA [None]
  - GASTRIC ULCER [None]
  - MELAENA [None]
  - SYNCOPE [None]
